FAERS Safety Report 9831661 (Version 4)
Quarter: 2014Q1

REPORT INFORMATION
  Report Type: Spontaneous
  Country: US (occurrence: US)
  Receive Date: 20140121
  Receipt Date: 20140219
  Transmission Date: 20141002
  Serious: No
  Sender: FDA-Public Use
  Company Number: US-PFIZER INC-2014016057

PATIENT
  Age: 79 Year
  Sex: Female

DRUGS (6)
  1. LYRICA [Suspect]
     Dosage: UNK
     Route: 048
  2. GABAPENTIN [Suspect]
     Dosage: UNK
     Route: 048
  3. METFORMIN HCL [Suspect]
     Dosage: UNK
     Route: 048
  4. BACLOFEN [Suspect]
     Dosage: UNK
     Route: 048
  5. CODEINE [Suspect]
     Dosage: UNK
     Route: 048
  6. FENTANYL [Suspect]
     Dosage: UNK
     Route: 048

REACTIONS (5)
  - Dystonia [Recovering/Resolving]
  - Headache [Recovering/Resolving]
  - Nausea [Recovering/Resolving]
  - Vomiting [Recovering/Resolving]
  - Diarrhoea [Recovering/Resolving]
